FAERS Safety Report 6504485-6 (Version None)
Quarter: 2009Q4

REPORT INFORMATION
  Report Type: 
  Country: None (occurrence: None)
  Receive Date: 20091217
  Receipt Date: 20091210
  Transmission Date: 20100525
  Serious: Yes (Life-Threatening)
  Sender: FDA-Public Use
  Company Number: GB-ABBOTT-09P-167-0604439-00

PATIENT
  Age: 16 Year
  Sex: Female
  Weight: 52 kg

DRUGS (11)
  1. HUMIRA [Suspect]
     Indication: ARTHROPATHY
     Dates: start: 20090101
  2. HUMIRA [Suspect]
     Indication: GASTROINTESTINAL DISORDER
  3. HUMIRA [Suspect]
  4. HUMIRA [Suspect]
     Indication: COLITIS
  5. NAPROXEN [Concomitant]
     Indication: PAIN
     Route: 048
     Dates: start: 20090916, end: 20091001
  6. CO-CODAMOL [Concomitant]
     Indication: PAIN
  7. PREMPAK C [Concomitant]
     Indication: MENORRHAGIA
     Dates: start: 20090930
  8. PREMPAK C [Concomitant]
     Indication: METRORRHAGIA
  9. BETNOVATE [Concomitant]
     Indication: DERMATITIS
     Route: 061
  10. GH [Concomitant]
     Indication: DRUG USE FOR UNKNOWN INDICATION
     Route: 030
     Dates: start: 20080101, end: 20091001
  11. ETHYNYLESTRADIOL [Concomitant]
     Indication: DRUG USE FOR UNKNOWN INDICATION
     Dates: start: 20080101, end: 20090901

REACTIONS (3)
  - HEADACHE [None]
  - HYPERTENSION [None]
  - LEFT VENTRICULAR HYPERTROPHY [None]
